FAERS Safety Report 7183263-1 (Version None)
Quarter: 2010Q4

REPORT INFORMATION
  Report Type: 
  Country: None (occurrence: None)
  Receive Date: 20101222
  Receipt Date: 20100513
  Transmission Date: 20110411
  Serious: No
  Sender: FDA-Public Use
  Company Number: A0859588A

PATIENT
  Age: 49 Year
  Sex: Male

DRUGS (6)
  1. FLONASE [Suspect]
     Route: 045
     Dates: start: 20040101, end: 20040101
  2. FLUTICASONE PROPIONATE [Suspect]
     Dosage: 2PUFF TWICE PER DAY
     Route: 045
     Dates: start: 20100501, end: 20100501
  3. ZYRTEC [Concomitant]
  4. CRESTOR [Concomitant]
  5. IBUPROFEN [Concomitant]
  6. VICODIN [Concomitant]

REACTIONS (3)
  - LARYNGITIS [None]
  - NASAL CONGESTION [None]
  - OROPHARYNGEAL PAIN [None]
